FAERS Safety Report 7039921-2 (Version None)
Quarter: 2010Q4

REPORT INFORMATION
  Report Type: 
  Country: None (occurrence: None)
  Receive Date: 20101012
  Receipt Date: 20101001
  Transmission Date: 20110411
  Serious: Yes (Other)
  Sender: FDA-Public Use
  Company Number: GB-PFIZER INC-2010125785

PATIENT

DRUGS (1)
  1. SUTENT [Suspect]

REACTIONS (1)
  - GOUT [None]
